FAERS Safety Report 10806368 (Version 1)
Quarter: 2015Q1

REPORT INFORMATION
  Report Type: Spontaneous
  Country: US (occurrence: US)
  Receive Date: 20150217
  Receipt Date: 20150217
  Transmission Date: 20150721
  Serious: No
  Sender: FDA-Public Use
  Company Number: US-ABBVIE-14K-163-1241759-00

PATIENT
  Age: 29 Year
  Sex: Female

DRUGS (4)
  1. PREDNISONE. [Concomitant]
     Active Substance: PREDNISONE
     Indication: ENTERITIS
  2. TRAMADOL [Concomitant]
     Active Substance: TRAMADOL
     Indication: ENTERITIS
  3. MERCAPTOPURIN [Concomitant]
     Indication: ENTERITIS
  4. HUMIRA [Suspect]
     Active Substance: ADALIMUMAB
     Indication: PRODUCT USED FOR UNKNOWN INDICATION
     Route: 058
     Dates: start: 20140430

REACTIONS (6)
  - Migraine [Unknown]
  - Vomiting [Unknown]
  - Limb discomfort [Unknown]
  - Sinus headache [Unknown]
  - Pyrexia [Unknown]
  - Influenza like illness [Unknown]

NARRATIVE: CASE EVENT DATE: 2014
